FAERS Safety Report 10076702 (Version 1)
Quarter: 2014Q2

REPORT INFORMATION
  Report Type: Spontaneous
  Country: US (occurrence: None)
  Receive Date: 20140411
  Receipt Date: 20140411
  Transmission Date: 20141212
  Serious: Yes (Disabling)
  Sender: FDA-Public Use
  Company Number: None

PATIENT
  Age: 28 Year
  Sex: Male
  Weight: 117.94 kg

DRUGS (4)
  1. LEVOFLOXACIN [Suspect]
     Indication: BRONCHITIS
     Route: 048
  2. LEVOFLOXACIN [Suspect]
     Indication: SKIN INFECTION
     Route: 048
  3. PREDNISONE [Suspect]
     Indication: BRONCHITIS
     Route: 048
     Dates: start: 20140324, end: 20140402
  4. PREDNISONE [Suspect]
     Indication: SKIN INFECTION
     Route: 048
     Dates: start: 20140324, end: 20140402

REACTIONS (3)
  - Drug interaction [None]
  - Tendonitis [None]
  - Tendonitis [None]
